FAERS Safety Report 12476599 (Version 2)
Quarter: 2016Q3

REPORT INFORMATION
  Report Type: Report from Study
  Country: LB (occurrence: LB)
  Receive Date: 20160617
  Receipt Date: 20160805
  Transmission Date: 20161109
  Serious: Yes (Hospitalization, Other)
  Sender: FDA-Public Use
  Company Number: PHHY2013LB040757

PATIENT
  Age: 33 Year
  Sex: Male

DRUGS (2)
  1. TASIGNA [Suspect]
     Active Substance: NILOTINIB
     Indication: CHRONIC MYELOID LEUKAEMIA
     Dosage: 800 MG, QD
     Route: 048
     Dates: start: 20130130
  2. EPANUTIN [Concomitant]
     Active Substance: PHENYTOIN SODIUM
     Indication: PRODUCT USED FOR UNKNOWN INDICATION
     Route: 048
     Dates: start: 201607

REACTIONS (9)
  - Intracranial aneurysm [Unknown]
  - Wound complication [Unknown]
  - Headache [Recovered/Resolved]
  - Exposure via father [Unknown]
  - Cerebral haemorrhage [Recovered/Resolved]
  - Dizziness [Recovering/Resolving]
  - Pyrexia [Recovering/Resolving]
  - Blood potassium decreased [Unknown]
  - Influenza [Recovering/Resolving]

NARRATIVE: CASE EVENT DATE: 20160404
